FAERS Safety Report 5488605-0 (Version None)
Quarter: 2007Q4

REPORT INFORMATION
  Report Type: 
  Country: None (occurrence: None)
  Receive Date: 20071001
  Receipt Date: 20070425
  Transmission Date: 20080405
  Serious: Yes (Hospitalization)
  Sender: FDA-Public Use
  Company Number: 200710530BWH

PATIENT
  Age: 68 Year
  Sex: Male

DRUGS (2)
  1. CIPRO [Suspect]
     Indication: DRUG USE FOR UNKNOWN INDICATION
  2. BLOOD PRESSURE MEDICATION [Concomitant]

REACTIONS (1)
  - PANCREATITIS [None]
